FAERS Safety Report 5386708-2 (Version None)
Quarter: 2007Q3

REPORT INFORMATION
  Report Type: 
  Country: None (occurrence: None)
  Receive Date: 20070713
  Receipt Date: 20070703
  Transmission Date: 20080115
  Serious: Yes (Hospitalization)
  Sender: FDA-Public Use
  Company Number: AU-ROCHE-505234

PATIENT
  Age: 73 Year
  Sex: Male

DRUGS (15)
  1. CAPECITABINE [Suspect]
     Dosage: GIVEN ON DAY 1-14, EVERY THREE WEEKS
     Route: 048
     Dates: start: 20070320
  2. BEVACIZUMAB [Suspect]
     Dosage: GIVEN ON DAY ONE, EVERY THREE WEEKS.
     Route: 042
     Dates: start: 20070320
  3. RISEDRONATE SODIUM [Concomitant]
     Route: 048
  4. FERRO-GRADUMET [Concomitant]
     Indication: PROPHYLAXIS
     Route: 048
  5. PLAVIX [Concomitant]
     Route: 048
  6. IRBESARTAN AND HYDROCHLOROTHIAZIDE [Concomitant]
     Dosage: DOSE REPORTED AS 150/12.5 MG
     Route: 048
  7. SPIRIVA [Concomitant]
     Route: 048
  8. LIPITOR [Concomitant]
     Route: 048
  9. CITRACAL [Concomitant]
     Route: 048
  10. VENTOLIN [Concomitant]
     Route: 050
  11. SERETIDE [Concomitant]
     Indication: PROPHYLAXIS
     Dosage: DOSE REPORTED AS 250/25 MCG
     Route: 050
  12. LITHIUM CARBONATE [Concomitant]
     Route: 048
  13. LORAZEPAM [Concomitant]
     Dosage: TAKEN AS NEEDED.
     Route: 048
     Dates: start: 20070524
  14. 1 CONCOMITANT DRUG [Concomitant]
     Dosage: TAKEN AS NEEDED. REPORTED AS BOZ CREAM FOR HAND AND FOOT SYNDROME.
     Route: 061
     Dates: start: 20070417
  15. PANAFCORT [Concomitant]
     Route: 048

REACTIONS (1)
  - CONVULSION [None]
